FAERS Safety Report 5737659-2 (Version None)
Quarter: 2008Q2

REPORT INFORMATION
  Report Type: 
  Country: None (occurrence: None)
  Receive Date: 20080512
  Receipt Date: 20080512
  Transmission Date: 20081010
  Serious: Yes (Life-Threatening, Hospitalization)
  Sender: FDA-Public Use
  Company Number: None

PATIENT
  Sex: Female
  Weight: 45.3597 kg

DRUGS (1)
  1. DIGITEK GENERIC BY BERTEK 125 MCG ACTAVIS TOTOWA/MYLAN PHARMA [Suspect]
     Indication: CARDIAC FAILURE
     Dosage: 125 MCG DAILY PO
     Route: 048
     Dates: start: 20080215, end: 20080511

REACTIONS (7)
  - ANOREXIA [None]
  - CEREBROVASCULAR ACCIDENT [None]
  - DEPRESSION [None]
  - DYSPNOEA [None]
  - HEMIPARESIS [None]
  - INCORRECT DOSE ADMINISTERED [None]
  - PHARMACEUTICAL PRODUCT COMPLAINT [None]
